FAERS Safety Report 13361941 (Version 2)
Quarter: 2017Q2

REPORT INFORMATION
  Report Type: Spontaneous
  Country: CN (occurrence: CN)
  Receive Date: 20170323
  Receipt Date: 20170606
  Transmission Date: 20170830
  Serious: Yes (Other)
  Sender: FDA-Public Use
  Company Number: CN-SUN PHARMACEUTICAL INDUSTRIES LTD-2017R1-136498

PATIENT
  Sex: Female

DRUGS (4)
  1. ACTINOMYCIN D [Suspect]
     Active Substance: DACTINOMYCIN
     Indication: NEPHROBLASTOMA
     Dosage: DAY 1
     Route: 065
  2. VINCRISTINE [Suspect]
     Active Substance: VINCRISTINE
     Indication: NEPHROBLASTOMA
     Dosage: ON DAY 1
     Route: 065
  3. PIRARUBICIN [Suspect]
     Active Substance: PIRARUBICIN
     Indication: NEPHROBLASTOMA
     Dosage: ON DAY 1
     Route: 065
  4. CISPLATIN. [Suspect]
     Active Substance: CISPLATIN
     Indication: NEPHROBLASTOMA
     Dosage: DAY 1
     Route: 065

REACTIONS (2)
  - Bone marrow failure [Recovering/Resolving]
  - Acute lymphocytic leukaemia [Recovering/Resolving]
